FAERS Safety Report 18132562 (Version 1)
Quarter: 2020Q3

REPORT INFORMATION
  Report Type: Other
  Country: TR (occurrence: TR)
  Receive Date: 20200811
  Receipt Date: 20200811
  Transmission Date: 20201103
  Serious: Yes (Hospitalization, Other)
  Sender: FDA-Public Use
  Company Number: TR-APTAPHARMA INC.-2088435

PATIENT
  Age: 21 Year
  Sex: Male

DRUGS (3)
  1. IBUPROFEN. [Suspect]
     Active Substance: IBUPROFEN
     Indication: MYOCARDITIS
     Route: 065
  2. COLCHICINE. [Suspect]
     Active Substance: COLCHICINE
     Route: 065
  3. OMEPRAZOLE. [Suspect]
     Active Substance: OMEPRAZOLE
     Route: 065

REACTIONS (4)
  - Arteriospasm coronary [Unknown]
  - Acute myocardial infarction [Unknown]
  - Product use in unapproved indication [Unknown]
  - Thrombosis [Unknown]
